FAERS Safety Report 9478695 (Version 1)
Quarter: 2013Q3

REPORT INFORMATION
  Report Type: Spontaneous
  Country: GB (occurrence: GB)
  Receive Date: 20130827
  Receipt Date: 20130827
  Transmission Date: 20140515
  Serious: Yes (Other)
  Sender: FDA-Public Use
  Company Number: GB-TEVA-427529ISR

PATIENT
  Age: 49 Year
  Sex: Male
  Weight: 74 kg

DRUGS (1)
  1. TRAZODONE [Suspect]
     Indication: ANXIETY
     Dosage: ONE TABLET BEFORE BED
     Route: 048
     Dates: start: 20130805, end: 20130806

REACTIONS (5)
  - Dizziness [Recovering/Resolving]
  - Hypopnoea [Recovered/Resolved]
  - Erection increased [Recovered/Resolved]
  - Peripheral coldness [Recovered/Resolved]
  - Nausea [Recovered/Resolved]
